FAERS Safety Report 16487298 (Version 1)
Quarter: 2019Q2

REPORT INFORMATION
  Report Type: Spontaneous
  Country: US (occurrence: US)
  Receive Date: 20190517
  Receipt Date: 20190517
  Transmission Date: 20190711
  Serious: No
  Sender: FDA-Public Use
  Company Number: None

PATIENT
  Age: 54 Year
  Sex: Female

DRUGS (1)
  1. VANCOMYCIN HCL 1GM FRESEMIUS KABI USA [Suspect]
     Active Substance: VANCOMYCIN HYDROCHLORIDE
     Indication: LOCALISED INFECTION
     Route: 042
     Dates: start: 20190424

REACTIONS (1)
  - Urticaria [None]

NARRATIVE: CASE EVENT DATE: 20190514
